FAERS Safety Report 24451714 (Version 1)
Quarter: 2024Q4

REPORT INFORMATION
  Report Type: Spontaneous
  Country: US (occurrence: None)
  Receive Date: 20241017
  Receipt Date: 20241017
  Transmission Date: 20250115
  Serious: Yes (Other)
  Sender: Public
  Company Number: None

PATIENT
  Age: 45 Year
  Sex: Male
  Weight: 105.75 kg

DRUGS (7)
  1. EPCLUSA [Suspect]
     Active Substance: SOFOSBUVIR\VELPATASVIR
     Indication: Hepatitis C
     Dosage: OTHER QUANTITY : 28 TABLET(S);?FREQUENCY : DAILY;?
     Route: 048
     Dates: start: 202410, end: 20241017
  2. ZOFRAN [Concomitant]
     Active Substance: ONDANSETRON HYDROCHLORIDE
  3. SUBOXONE [Concomitant]
     Active Substance: BUPRENORPHINE HYDROCHLORIDE\NALOXONE HYDROCHLORIDE
  4. SEROQUEL [Concomitant]
     Active Substance: QUETIAPINE FUMARATE
  5. LISINOPRIL [Concomitant]
  6. CLONIDINE [Concomitant]
     Active Substance: CLONIDINE
  7. ADDERALL [Concomitant]

REACTIONS (10)
  - Erythema [None]
  - Hyperhidrosis [None]
  - Feeling cold [None]
  - Nausea [None]
  - Vomiting projectile [None]
  - Dizziness [None]
  - Dizziness [None]
  - Vision blurred [None]
  - Blood pressure increased [None]
  - Heart rate increased [None]

NARRATIVE: CASE EVENT DATE: 20241008
